FAERS Safety Report 13773074 (Version 1)
Quarter: 2017Q3

REPORT INFORMATION
  Report Type: Spontaneous
  Country: US (occurrence: US)
  Receive Date: 20170720
  Receipt Date: 20170720
  Transmission Date: 20171127
  Serious: Yes (Other)
  Sender: FDA-Public Use
  Company Number: US-PFIZER INC-2017310643

PATIENT
  Age: 39 Year
  Sex: Female

DRUGS (2)
  1. METHOTREXATE. [Concomitant]
     Active Substance: METHOTREXATE
  2. GABAPENTIN. [Suspect]
     Active Substance: GABAPENTIN
     Dosage: UNK

REACTIONS (16)
  - Fibromyalgia [Unknown]
  - Rheumatoid arthritis [Unknown]
  - Condition aggravated [Unknown]
  - Peripheral swelling [Unknown]
  - Hypoaesthesia [Unknown]
  - Arthralgia [Unknown]
  - Bone erosion [Unknown]
  - Foot fracture [Unknown]
  - Joint range of motion decreased [Unknown]
  - Fatigue [Unknown]
  - Pain [Unknown]
  - Sleep disorder [Unknown]
  - C-reactive protein increased [Unknown]
  - Finger deformity [Unknown]
  - High density lipoprotein decreased [Unknown]
  - Osteoarthritis [Unknown]

NARRATIVE: CASE EVENT DATE: 20161110
